FAERS Safety Report 14202808 (Version 1)
Quarter: 2017Q4

REPORT INFORMATION
  Report Type: Spontaneous
  Country: US (occurrence: US)
  Receive Date: 20171119
  Receipt Date: 20171119
  Transmission Date: 20180321
  Serious: No
  Sender: FDA-Public Use
  Company Number: US-DUSA PHARMACEUTICALS, INC.-2034588

PATIENT
  Age: 39 Year
  Sex: Female

DRUGS (3)
  1. ADDERALL [Concomitant]
     Active Substance: AMPHETAMINE ASPARTATE\AMPHETAMINE SULFATE\DEXTROAMPHETAMINE SACCHARATE\DEXTROAMPHETAMINE SULFATE
     Dates: start: 2007
  2. LEVULAN KERASTICK [Suspect]
     Active Substance: AMINOLEVULINIC ACID HYDROCHLORIDE
     Route: 061
     Dates: start: 20170501, end: 20170501
  3. THYROID MEDICINE [Concomitant]
     Active Substance: UNSPECIFIED INGREDIENT
     Dates: start: 2007

REACTIONS (6)
  - Application site infection [Unknown]
  - Application site pain [Unknown]
  - Application site exfoliation [Unknown]
  - Application site discolouration [Unknown]
  - Application site haemorrhage [Unknown]
  - Application site irritation [Unknown]

NARRATIVE: CASE EVENT DATE: 20170501
